FAERS Safety Report 18501886 (Version 2)
Quarter: 2021Q1

REPORT INFORMATION
  Report Type: Report from Study
  Country: CA (occurrence: CA)
  Receive Date: 20201113
  Receipt Date: 20210312
  Transmission Date: 20210419
  Serious: Yes (Hospitalization, Other)
  Sender: FDA-Public Use
  Company Number: CA-BRISTOL-MYERS SQUIBB COMPANY-BMS-2020-095258

PATIENT
  Sex: Female

DRUGS (1)
  1. ABATACEPT [Suspect]
     Active Substance: ABATACEPT
     Indication: RHEUMATOID ARTHRITIS
     Dosage: 125 MILLIGRAM, QWK
     Route: 058
     Dates: start: 20151015

REACTIONS (7)
  - Drug ineffective [Unknown]
  - Liver disorder [Unknown]
  - Arthralgia [Unknown]
  - Pneumonia [Unknown]
  - Feeding disorder [Unknown]
  - Vomiting [Unknown]
  - Hepatic pain [Unknown]
